FAERS Safety Report 25139707 (Version 1)
Quarter: 2025Q1

REPORT INFORMATION
  Report Type: Spontaneous
  Country: FR (occurrence: FR)
  Receive Date: 20250331
  Receipt Date: 20250331
  Transmission Date: 20250409
  Serious: Yes (Other)
  Sender: CSL BEHRING
  Company Number: None

PATIENT
  Age: 63 Year
  Sex: Female
  Weight: 85 kg

DRUGS (3)
  1. PRIVIGEN [Suspect]
     Active Substance: HUMAN IMMUNOGLOBULIN G
     Indication: Pseudomonas infection
     Dosage: 1 DF, QD
     Route: 042
     Dates: start: 20241221, end: 20241222
  2. LINEZOLID [Suspect]
     Active Substance: LINEZOLID
     Indication: Pseudomonas infection
     Dosage: 1 DF, QD
     Route: 048
     Dates: start: 20241210, end: 20241216
  3. CEFIDEROCOL SULFATE TOSYLATE [Suspect]
     Active Substance: CEFIDEROCOL SULFATE TOSYLATE
     Indication: Pseudomonas infection
     Dosage: 1 DF, QD
     Route: 042
     Dates: start: 20241210, end: 20241216

REACTIONS (2)
  - Thrombocytopenia [Recovered/Resolved]
  - Off label use [Unknown]

NARRATIVE: CASE EVENT DATE: 20241221
